FAERS Safety Report 17840837 (Version 6)
Quarter: 2020Q3

REPORT INFORMATION
  Report Type: Report from Study
  Country: US (occurrence: US)
  Receive Date: 20200529
  Receipt Date: 20200924
  Transmission Date: 20201103
  Serious: Yes (Hospitalization)
  Sender: FDA-Public Use
  Company Number: US-AGIOS-2005US01915

PATIENT

DRUGS (3)
  1. TIBSOVO [Suspect]
     Active Substance: IVOSIDENIB
     Indication: CHRONIC LYMPHOCYTIC LEUKAEMIA
     Dosage: 250 MILLIGRAM, 2 TABLETS (500 MG) DAILY
     Route: 048
     Dates: start: 20200424, end: 20200918
  2. TIBSOVO [Suspect]
     Active Substance: IVOSIDENIB
     Indication: AUTOIMMUNE HAEMOLYTIC ANAEMIA
  3. VENCLEXTA [Concomitant]
     Active Substance: VENETOCLAX
     Indication: CHRONIC LYMPHOCYTIC LEUKAEMIA

REACTIONS (12)
  - Headache [Unknown]
  - Colitis [Unknown]
  - White blood cell count abnormal [Unknown]
  - Pyrexia [Unknown]
  - Taste disorder [Unknown]
  - Diarrhoea [Unknown]
  - Decreased appetite [Unknown]
  - Fatigue [Unknown]
  - Nausea [Unknown]
  - Off label use [Recovered/Resolved]
  - Platelet count decreased [Unknown]
  - Haemoglobin abnormal [Unknown]

NARRATIVE: CASE EVENT DATE: 20200424
